FAERS Safety Report 4940030-4 (Version None)
Quarter: 2006Q1

REPORT INFORMATION
  Report Type: 
  Country: None (occurrence: None)
  Receive Date: 20060310
  Receipt Date: 20051115
  Transmission Date: 20060701
  Serious: Yes (Death, Hospitalization, Other)
  Sender: FDA-Public Use
  Company Number: FR-BRISTOL-MYERS SQUIBB COMPANY-13187851

PATIENT
  Age: 61 Year
  Sex: Female

DRUGS (3)
  1. GLUCOVANCE [Suspect]
     Indication: DIABETES MELLITUS NON-INSULIN-DEPENDENT
     Route: 048
     Dates: start: 20050901
  2. LEVOTHYROX [Concomitant]
     Route: 048
  3. SEROPRAM [Concomitant]

REACTIONS (4)
  - HEPATITIS [None]
  - MEDICATION ERROR [None]
  - NEOPLASM MALIGNANT [None]
  - WEIGHT DECREASED [None]
